FAERS Safety Report 7416103-3 (Version None)
Quarter: 2011Q2

REPORT INFORMATION
  Report Type: 
  Country: None (occurrence: None)
  Receive Date: 20110414
  Receipt Date: 20110401
  Transmission Date: 20111010
  Serious: Yes (Death)
  Sender: FDA-Public Use
  Company Number: US-ELI_LILLY_AND_COMPANY-US201103006724

PATIENT
  Sex: Male
  Weight: 109.7 kg

DRUGS (7)
  1. ZYPREXA RELPREVV [Suspect]
     Indication: SCHIZOPHRENIA, PARANOID TYPE
     Dosage: 300 MG, 2/M
     Route: 030
     Dates: start: 20101015
  2. ZYPREXA [Concomitant]
     Dosage: 10 MG, QD
     Route: 048
  3. ALCOHOL [Concomitant]
  4. LISINOPRIL HCT                     /01613901/ [Concomitant]
     Dosage: 20/25MG, QD
     Route: 048
  5. OMEPRAZOLE [Concomitant]
     Dosage: 40 MG, QD
     Route: 048
  6. METOPROLOL TARTRATE [Concomitant]
     Dosage: 200 MG, QD
     Route: 048
  7. VALIUM [Concomitant]
     Dosage: 10 MG, QD
     Route: 048

REACTIONS (1)
  - GASTROINTESTINAL HAEMORRHAGE [None]
